FAERS Safety Report 14381727 (Version 1)
Quarter: 2018Q1

REPORT INFORMATION
  Report Type: Other
  Country: US (occurrence: US)
  Receive Date: 20180112
  Receipt Date: 20180112
  Transmission Date: 20180509
  Serious: Yes (Death)
  Sender: FDA-Public Use
  Company Number: US-GENUS_LIFESCIENCES-USA-POI0580201800071

PATIENT
  Age: 60 Year
  Sex: Male

DRUGS (9)
  1. TADALAFIL [Suspect]
     Active Substance: TADALAFIL
     Dates: end: 2016
  2. HYDROCHLOROTHIAZIDE. [Suspect]
     Active Substance: HYDROCHLOROTHIAZIDE
     Dates: end: 2016
  3. EMPAGLIFLOZIN [Suspect]
     Active Substance: EMPAGLIFLOZIN
     Dates: end: 2016
  4. OMEPRAZOLE. [Suspect]
     Active Substance: OMEPRAZOLE
     Dates: end: 2016
  5. SENNA ALKALOIDS (SENNA ALEXANDRINA) [Suspect]
     Active Substance: SENNA LEAF
     Dates: end: 2016
  6. LEVOLET (LEVOTHYROXINE) [Suspect]
     Active Substance: LEVOTHYROXINE
     Dates: end: 2016
  7. SERTRALINE [Suspect]
     Active Substance: SERTRALINE HYDROCHLORIDE
     Dates: end: 2016
  8. METFORMIN [Suspect]
     Active Substance: METFORMIN HYDROCHLORIDE
     Dates: end: 2016
  9. LOSARTAN. [Suspect]
     Active Substance: LOSARTAN
     Dates: end: 2016

REACTIONS (1)
  - Completed suicide [Fatal]

NARRATIVE: CASE EVENT DATE: 2016
